FAERS Safety Report 24078851 (Version 1)
Quarter: 2024Q3

REPORT INFORMATION
  Report Type: Spontaneous
  Country: SG (occurrence: SG)
  Receive Date: 20240711
  Receipt Date: 20240711
  Transmission Date: 20241017
  Serious: Yes (Other)
  Sender: ROCHE
  Company Number: SG-BoehringerIngelheim-2024-BI-037789

PATIENT
  Age: 62 Year
  Sex: Male

DRUGS (1)
  1. ALTEPLASE [Suspect]
     Active Substance: ALTEPLASE
     Indication: Product used for unknown indication
     Route: 042
     Dates: start: 20240612

REACTIONS (1)
  - Urticaria [Recovered/Resolved]
